FAERS Safety Report 8326168-2 (Version None)
Quarter: 2012Q2

REPORT INFORMATION
  Report Type: 
  Country: None (occurrence: None)
  Receive Date: 20120501
  Receipt Date: 20120423
  Transmission Date: 20120825
  Serious: Yes (Death)
  Sender: FDA-Public Use
  Company Number: DE-ROCHE-1063711

PATIENT
  Sex: Male
  Weight: 62.5 kg

DRUGS (7)
  1. AVASTIN [Suspect]
     Indication: RENAL CELL CARCINOMA
     Dosage: EVERY OTHER WEEK
     Route: 042
     Dates: start: 20100805, end: 20100916
  2. ROFERON-A [Suspect]
     Indication: RENAL CELL CARCINOMA
     Dosage: THREE TIMES WEEKLY
     Route: 058
     Dates: start: 20100809, end: 20100916
  3. CANDESARTAN CILEXETIL [Concomitant]
     Dates: start: 20120313, end: 20120413
  4. ENALAPRIL MALEATE [Concomitant]
     Dates: start: 20120313, end: 20120413
  5. PAZOPANIB [Suspect]
     Indication: RENAL CELL CARCINOMA
     Route: 048
     Dates: start: 20120313, end: 20120414
  6. AMLODIPINE [Concomitant]
     Dates: start: 20120313, end: 20120413
  7. FUROSEMIDE [Concomitant]
     Dates: start: 20120313, end: 20120413

REACTIONS (1)
  - DISEASE PROGRESSION [None]
